FAERS Safety Report 16964275 (Version 1)
Quarter: 2019Q4

REPORT INFORMATION
  Report Type: Spontaneous
  Country: US (occurrence: US)
  Receive Date: 20191026
  Receipt Date: 20191026
  Transmission Date: 20200122
  Serious: Yes (Other)
  Sender: FDA-Public Use
  Company Number: None

PATIENT
  Age: 55 Year
  Sex: Female
  Weight: 43.65 kg

DRUGS (2)
  1. VITAMIN D [Concomitant]
     Active Substance: VITAMIN D NOS
  2. PEPCID [Suspect]
     Active Substance: FAMOTIDINE
     Indication: GASTROOESOPHAGEAL REFLUX DISEASE
     Dosage: ?          QUANTITY:1 TABLET(S);?
     Route: 048
     Dates: start: 20191023, end: 20191024

REACTIONS (7)
  - Mental impairment [None]
  - Therapeutic response shortened [None]
  - Near death experience [None]
  - Fatigue [None]
  - Bedridden [None]
  - Loss of personal independence in daily activities [None]
  - Decreased activity [None]

NARRATIVE: CASE EVENT DATE: 20191024
